FAERS Safety Report 6664338-X (Version None)
Quarter: 2010Q2

REPORT INFORMATION
  Report Type: 
  Country: None (occurrence: None)
  Receive Date: 20100401
  Receipt Date: 20100317
  Transmission Date: 20101027
  Serious: Yes (Hospitalization)
  Sender: FDA-Public Use
  Company Number: NL-MEDIMMUNE-MEDI-0010872

PATIENT
  Sex: Male
  Weight: 8.41 kg

DRUGS (2)
  1. SYNAGIS [Suspect]
     Route: 030
     Dates: start: 20090907, end: 20090907
  2. SYNAGIS [Suspect]
     Route: 030
     Dates: start: 20091001

REACTIONS (5)
  - COUGH [None]
  - DEHYDRATION [None]
  - DYSPNOEA [None]
  - FEEDING DISORDER [None]
  - NASOPHARYNGITIS [None]
